FAERS Safety Report 17653857 (Version 1)
Quarter: 2020Q2

REPORT INFORMATION
  Report Type: Other
  Country: US (occurrence: US)
  Receive Date: 20200410
  Receipt Date: 20200410
  Transmission Date: 20200713
  Serious: Yes (Hospitalization, Other)
  Sender: FDA-Public Use
  Company Number: US-APTAPHARMA INC.-2082605

PATIENT
  Age: 54 Year
  Sex: Female

DRUGS (2)
  1. IBUPROFEN ORAL [Suspect]
     Active Substance: IBUPROFEN
     Indication: MIGRAINE
     Route: 065
  2. SUMATRIPTAN. [Concomitant]
     Active Substance: SUMATRIPTAN
     Route: 065

REACTIONS (3)
  - Hypokalaemia [Recovered/Resolved]
  - Overdose [Unknown]
  - Renal tubular acidosis [Recovered/Resolved]
